FAERS Safety Report 11382893 (Version 1)
Quarter: 2015Q3

REPORT INFORMATION
  Report Type: Spontaneous
  Country: GB (occurrence: GB)
  Receive Date: 20150814
  Receipt Date: 20150814
  Transmission Date: 20151125
  Serious: Yes (Hospitalization)
  Sender: FDA-Public Use
  Company Number: GB-PFIZER INC-2014286827

PATIENT
  Sex: Male
  Weight: 3.04 kg

DRUGS (1)
  1. DEPO-PROVERA [Suspect]
     Active Substance: MEDROXYPROGESTERONE ACETATE
     Indication: CONTRACEPTION
     Dosage: 150 MG/ML, EVERY 3 MONTHS (12 WEEKS)
     Route: 064
     Dates: start: 20140926

REACTIONS (3)
  - Maternal exposure during pregnancy [Recovered/Resolved]
  - Meconium abnormal [Recovered/Resolved]
  - Premature baby [Unknown]
